FAERS Safety Report 8621942-7 (Version None)
Quarter: 2012Q3

REPORT INFORMATION
  Report Type: 
  Country: None (occurrence: None)
  Receive Date: 20120822
  Receipt Date: 20120822
  Transmission Date: 20120928
  Serious: Yes (Other)
  Sender: FDA-Public Use
  Company Number: None

PATIENT
  Age: 78 Year
  Sex: Female
  Weight: 54.4 kg

DRUGS (5)
  1. LOPRESSOR [Concomitant]
  2. PLAVIX [Suspect]
     Indication: CEREBROVASCULAR ACCIDENT
     Dosage: 75 MG, 1X/DAY, ORAL
     Route: 048
     Dates: start: 20120709, end: 20120724
  3. MULTI-VITAMINS [Suspect]
     Indication: CEREBROVASCULAR ACCIDENT
     Dosage: 1X/DAY, ORAL
     Route: 048
     Dates: start: 20120711, end: 20120724
  4. MULTI-VITAMINS [Suspect]
     Indication: VITAMIN SUPPLEMENTATION
     Dosage: 1X/DAY, ORAL
     Route: 048
     Dates: start: 20120711, end: 20120724
  5. LISINOPRIL [Concomitant]

REACTIONS (3)
  - ERYTHEMA [None]
  - PRURITUS [None]
  - PAIN IN EXTREMITY [None]
